FAERS Safety Report 10639527 (Version 2)
Quarter: 2015Q1

REPORT INFORMATION
  Report Type: Spontaneous
  Country: US (occurrence: US)
  Receive Date: 20141209
  Receipt Date: 20150127
  Transmission Date: 20150720
  Serious: Yes (Other)
  Sender: FDA-Public Use
  Company Number: US-DENDREON CORPORATION-2014PROUSA04175

PATIENT
  Age: 87 Year
  Sex: Male
  Weight: 57.87 kg

DRUGS (2)
  1. PROVENGE [Suspect]
     Active Substance: SIPULEUCEL-T
     Indication: PROSTATE CANCER METASTATIC
     Dosage: 250 ML, SINGLE
     Route: 042
     Dates: start: 20141024, end: 20141024
  2. PROVENGE [Suspect]
     Active Substance: SIPULEUCEL-T
     Dosage: 250 ML, SINGLE
     Route: 042
     Dates: start: 20141121, end: 20141121

REACTIONS (1)
  - Thrombosis [Unknown]

NARRATIVE: CASE EVENT DATE: 20141126
